FAERS Safety Report 12422543 (Version 6)
Quarter: 2017Q1

REPORT INFORMATION
  Report Type: Report from Study
  Country: US (occurrence: US)
  Receive Date: 20160601
  Receipt Date: 20170227
  Transmission Date: 20170428
  Serious: Yes (Hospitalization)
  Sender: FDA-Public Use
  Company Number: US-ROCHE-1766183

PATIENT
  Age: 50 Year
  Sex: Female
  Weight: 51.4 kg

DRUGS (18)
  1. GRANISETRON [Concomitant]
     Active Substance: GRANISETRON
     Route: 042
     Dates: start: 20160427
  2. DIPHENHYDRAMINE/IBUPROFEN [Concomitant]
     Active Substance: DIPHENHYDRAMINE HYDROCHLORIDE\IBUPROFEN
     Indication: MYALGIA
  3. HEPARIN [Concomitant]
     Active Substance: HEPARIN SODIUM
     Dosage: 5000 UNITS
     Route: 058
     Dates: start: 20160527
  4. DIPHENHYDRAMINE. [Concomitant]
     Active Substance: DIPHENHYDRAMINE
     Indication: INFUSION RELATED REACTION
     Route: 042
     Dates: start: 20160526, end: 20160526
  5. DEXAMETHASONE. [Concomitant]
     Active Substance: DEXAMETHASONE
     Indication: INFUSION RELATED REACTION
     Route: 042
     Dates: start: 20160526, end: 20160526
  6. ACETAMINOPHEN. [Concomitant]
     Active Substance: ACETAMINOPHEN
     Indication: INFUSION RELATED REACTION
     Route: 048
     Dates: start: 20160526, end: 20160526
  7. ATEZOLIZUMAB [Suspect]
     Active Substance: ATEZOLIZUMAB
     Indication: NEOPLASM
     Dosage: FIXED PER PROTOCOL. ON 11/MAY/2016, THE PATIENT RECEIVED THE MOST RECENT DOSE OF ATEZOLIZUMAB AT 800
     Route: 042
     Dates: start: 20160511
  8. TYLENOL [Concomitant]
     Active Substance: ACETAMINOPHEN
     Indication: PAIN
     Route: 048
     Dates: start: 20160427
  9. PYRIDOXINE [Concomitant]
     Active Substance: PYRIDOXINE
     Route: 065
     Dates: start: 20160607
  10. ALBUTEROL. [Concomitant]
     Active Substance: ALBUTEROL
     Indication: INFUSION RELATED REACTION
     Route: 065
     Dates: start: 20160526, end: 20160526
  11. POTASSIUM CHLORIDE. [Concomitant]
     Active Substance: POTASSIUM CHLORIDE
     Indication: HYPOKALAEMIA
     Dosage: 40
     Route: 048
     Dates: start: 20160528, end: 20160528
  12. DIPHENHYDRAMINE/IBUPROFEN [Concomitant]
     Active Substance: DIPHENHYDRAMINE HYDROCHLORIDE\IBUPROFEN
     Indication: INSOMNIA
     Route: 048
     Dates: start: 20160531
  13. NAB-PACLITAXEL [Suspect]
     Active Substance: PACLITAXEL
     Indication: NEOPLASM
     Dosage: DOSE PER PROTOCOL. THE MOST RECENT DOSE OF PACLITAXEL ALBUMIN PRIOR TO THE ONSET OF PNEUMONIA WAS ON
     Route: 042
     Dates: start: 20160427
  14. TEGRETOL [Concomitant]
     Active Substance: CARBAMAZEPINE
     Indication: PROPHYLAXIS
     Route: 048
     Dates: start: 20160303
  15. DEXTROMETHORPHAN HYDROBROMIDE. [Concomitant]
     Active Substance: DEXTROMETHORPHAN HYDROBROMIDE
     Indication: INFLUENZA LIKE ILLNESS
     Route: 048
     Dates: start: 20160521, end: 20160525
  16. TRAZODONE [Concomitant]
     Active Substance: TRAZODONE HYDROCHLORIDE
     Indication: INSOMNIA
     Route: 048
     Dates: start: 20160527
  17. IPRATROPIUM [Concomitant]
     Active Substance: IPRATROPIUM
     Indication: INFUSION RELATED REACTION
     Route: 065
     Dates: start: 20160526, end: 20160526
  18. VITAMIN B12 [Concomitant]
     Active Substance: CYANOCOBALAMIN
     Route: 065
     Dates: start: 20160607

REACTIONS (1)
  - Pneumonia [Recovered/Resolved]

NARRATIVE: CASE EVENT DATE: 20160526
